FAERS Safety Report 5381579-2 (Version None)
Quarter: 2007Q2

REPORT INFORMATION
  Report Type: 
  Country: None (occurrence: None)
  Receive Date: 20070629
  Receipt Date: 20060602
  Transmission Date: 20071010
  Serious: Yes (Death, Other)
  Sender: FDA-Public Use
  Company Number: 2005116962

PATIENT
  Age: 14 Year
  Sex: Male

DRUGS (2)
  1. ZOLOFT [Suspect]
     Indication: CONDITION AGGRAVATED
     Dates: start: 20040301, end: 20040529
  2. ZOLOFT [Suspect]
     Indication: DEPRESSION
     Dates: start: 20040301, end: 20040529

REACTIONS (3)
  - AGGRESSION [None]
  - COMPLETED SUICIDE [None]
  - SUICIDAL IDEATION [None]
